FAERS Safety Report 5827020-4 (Version None)
Quarter: 2008Q3

REPORT INFORMATION
  Report Type: 
  Country: None (occurrence: None)
  Receive Date: 20080729
  Receipt Date: 20080729
  Transmission Date: 20090109
  Serious: Yes (Death)
  Sender: FDA-Public Use
  Company Number: None

PATIENT
  Age: 11 Year
  Sex: Male
  Weight: 31.7 kg

DRUGS (1)
  1. PROPOFOL [Suspect]
     Indication: CONVULSION
     Dosage: 125-400MCG/KG/MIN ABOUT 25 HOURS IV 4/24/2008 2000-4/25/2008 2100
     Route: 042
     Dates: start: 20080424, end: 20080425

REACTIONS (13)
  - ANOXIC ENCEPHALOPATHY [None]
  - ARRHYTHMIA [None]
  - BLOOD POTASSIUM INCREASED [None]
  - BRADYCARDIA [None]
  - BRAIN INJURY [None]
  - CARDIAC ARREST [None]
  - CARDIOMYOPATHY [None]
  - CEREBRAL ISCHAEMIA [None]
  - COAGULOPATHY [None]
  - MULTI-ORGAN FAILURE [None]
  - RENAL FAILURE [None]
  - RHABDOMYOLYSIS [None]
  - TACHYCARDIA [None]
